FAERS Safety Report 8110855-5 (Version None)
Quarter: 2012Q1

REPORT INFORMATION
  Report Type: 
  Country: None (occurrence: None)
  Receive Date: 20120125
  Receipt Date: 20120110
  Transmission Date: 20120608
  Serious: Yes (Hospitalization)
  Sender: FDA-Public Use
  Company Number: 2011PROUSA00813

PATIENT
  Age: 75 Year
  Sex: Male
  Weight: 67.3 kg

DRUGS (19)
  1. RENAGEL [Concomitant]
  2. ATENOLOL [Concomitant]
  3. LOVASTATIN [Concomitant]
  4. CASODEX [Concomitant]
  5. ADVAIR HFA [Concomitant]
  6. ALBUTEROL [Concomitant]
  7. DIOVAN [Concomitant]
  8. KLOR-CON [Concomitant]
  9. PROVENGE [Suspect]
  10. PROVENGE [Suspect]
     Indication: PROSTATE CANCER METASTATIC
     Dosage: 250 ML, SINGLE, INTRAVENOUS
     Route: 042
     Dates: start: 20111010, end: 20111010
  11. PROVENGE [Suspect]
     Indication: PROSTATE CANCER METASTATIC
     Dosage: 250 ML, SINGLE, INTRAVENOUS
     Route: 042
     Dates: start: 20110926, end: 20110926
  12. PROVENGE [Suspect]
     Indication: PROSTATE CANCER METASTATIC
     Dosage: 250 ML, SINGLE, INTRAVENOUS
     Route: 042
     Dates: start: 20111024, end: 20111024
  13. NEXIUM [Concomitant]
  14. ASPIRIN [Concomitant]
  15. GLYBURIDE [Concomitant]
  16. MULTIVITAMIN /00097801/ (ASCORBIC ACID, CALCIUM PANTOTHENATE, ERGOCALC [Concomitant]
  17. COMBIVENT [Concomitant]
  18. THEOPHYLLINE [Concomitant]
  19. PROVENGE [Suspect]

REACTIONS (6)
  - HEPATITIS [None]
  - FATIGUE [None]
  - PANCREATITIS [None]
  - BLOOD GLUCOSE INCREASED [None]
  - BLOOD POTASSIUM DECREASED [None]
  - BLOOD CREATININE INCREASED [None]
